FAERS Safety Report 10409252 (Version 19)
Quarter: 2016Q4

REPORT INFORMATION
  Report Type: Spontaneous
  Country: US (occurrence: US)
  Receive Date: 20140826
  Receipt Date: 20161013
  Transmission Date: 20170206
  Serious: Yes (Hospitalization, Other)
  Sender: FDA-Public Use
  Company Number: US-JNJFOC-20140818047

PATIENT
  Age: 52 Year
  Sex: Female

DRUGS (2)
  1. TYLENOL EXTRA STRENGTH [Suspect]
     Active Substance: ACETAMINOPHEN
     Indication: ABDOMINAL PAIN UPPER
     Dosage: 2 TABLETS EVERY FEW HOURS AS DIRECTED
     Route: 048
     Dates: start: 200507, end: 200508
  2. XALATAN [Concomitant]
     Active Substance: LATANOPROST
     Indication: GLAUCOMA
     Route: 065
     Dates: start: 2005

REACTIONS (9)
  - Coma [Unknown]
  - Overdose [Unknown]
  - Respiratory failure [Unknown]
  - Dehydration [Unknown]
  - Weight decreased [Unknown]
  - Acute hepatic failure [Recovered/Resolved]
  - Metabolic encephalopathy [Unknown]
  - Hepatitis [Unknown]
  - Anaemia [Unknown]

NARRATIVE: CASE EVENT DATE: 20050728
